FAERS Safety Report 5273928-0 (Version None)
Quarter: 2007Q1

REPORT INFORMATION
  Report Type: 
  Country: None (occurrence: None)
  Receive Date: 20070323
  Receipt Date: 20070319
  Transmission Date: 20070707
  Serious: Yes (Other)
  Sender: FDA-Public Use
  Company Number: 2006UW26876

PATIENT
  Age: 75 Year
  Sex: Female

DRUGS (15)
  1. IRESSA [Suspect]
     Indication: LUNG NEOPLASM MALIGNANT
     Route: 048
     Dates: start: 20041201
  2. RHINOCORT [Concomitant]
     Indication: SINUS DISORDER
     Route: 045
  3. PAREGORIC [Concomitant]
     Indication: DIARRHOEA
  4. MULTI-VITAMIN [Concomitant]
  5. CALCIUM [Concomitant]
  6. ASCORBIC ACID [Concomitant]
  7. VITAMIN B6 [Concomitant]
  8. GLUCOSAMINE [Concomitant]
     Indication: ARTHRITIS
  9. CHONDROITEN [Concomitant]
     Indication: ARTHRITIS
  10. BLACK COHOSH [Concomitant]
  11. ASTRAGALUS [Concomitant]
  12. OMEGA 369 [Concomitant]
  13. OCULAR [Concomitant]
     Indication: CATARACT
  14. MAALOX FAST BLOCKER [Concomitant]
  15. ALLEGRA [Concomitant]
     Indication: HYPERSENSITIVITY

REACTIONS (7)
  - BACK PAIN [None]
  - CATARACT [None]
  - CONSTIPATION [None]
  - DIARRHOEA [None]
  - DRY SKIN [None]
  - NAIL DISORDER [None]
  - REFLUX OESOPHAGITIS [None]
